FAERS Safety Report 14690253 (Version 1)
Quarter: 2018Q1

REPORT INFORMATION
  Report Type: Spontaneous
  Country: IT (occurrence: IT)
  Receive Date: 20180328
  Receipt Date: 20180328
  Transmission Date: 20180509
  Serious: Yes (Other)
  Sender: FDA-Public Use
  Company Number: IT-BAUSCH-BL-2018-007551

PATIENT
  Age: 71 Year
  Sex: Male

DRUGS (3)
  1. CAELYX [Suspect]
     Active Substance: DOXORUBICIN HYDROCHLORIDE
     Indication: PLASMA CELL MYELOMA
     Route: 065
     Dates: start: 20150624, end: 20160314
  2. VELCADE [Suspect]
     Active Substance: BORTEZOMIB
     Indication: PLASMA CELL MYELOMA
     Dosage: DOSE 2, DOSAGE FORM: UNSPECIFIED
     Route: 058
     Dates: start: 20150624, end: 20160101
  3. DEXAMETHASONE. [Suspect]
     Active Substance: DEXAMETHASONE
     Indication: PLASMA CELL MYELOMA
     Dosage: DOSE 2, DOSAGE FORM: UNSPECIFIED
     Route: 065
     Dates: start: 20150621, end: 20160101

REACTIONS (2)
  - Condition aggravated [Unknown]
  - Off label use [Unknown]
